FAERS Safety Report 14427399 (Version 1)
Quarter: 2018Q1

REPORT INFORMATION
  Report Type: Spontaneous
  Country: US (occurrence: US)
  Receive Date: 20180123
  Receipt Date: 20180123
  Transmission Date: 20180509
  Serious: No
  Sender: FDA-Public Use
  Company Number: US-IMPAX LABORATORIES, INC-2017-IPXL-03846

PATIENT
  Age: 66 Year
  Sex: Male

DRUGS (1)
  1. RYTARY [Suspect]
     Active Substance: CARBIDOPA\LEVODOPA
     Indication: PARKINSON^S DISEASE
     Dosage: 23.75-95 MG/36.25-145 MG/48.75-195 MG, UNK
     Route: 065

REACTIONS (3)
  - Somnolence [Unknown]
  - Speech disorder [Unknown]
  - Fatigue [Unknown]
